FAERS Safety Report 18912269 (Version 1)
Quarter: 2021Q1

REPORT INFORMATION
  Report Type: Spontaneous
  Country: US (occurrence: US)
  Receive Date: 20210219
  Receipt Date: 20210219
  Transmission Date: 20210420
  Serious: Yes (Hospitalization, Other)
  Sender: FDA-Public Use
  Company Number: US-AUROBINDO-AUR-APL-2018-006577

PATIENT
  Age: 8 Year
  Sex: Female

DRUGS (8)
  1. RISPERIDONE. [Concomitant]
     Active Substance: RISPERIDONE
     Indication: ATTENTION DEFICIT HYPERACTIVITY DISORDER
  2. ADDERALL [Concomitant]
     Active Substance: AMPHETAMINE ASPARTATE\AMPHETAMINE SULFATE\DEXTROAMPHETAMINE SACCHARATE\DEXTROAMPHETAMINE SULFATE
     Indication: ATTENTION DEFICIT HYPERACTIVITY DISORDER
  3. DEXTROAMPHETAMINE. [Concomitant]
     Active Substance: DEXTROAMPHETAMINE
     Indication: ATTENTION DEFICIT HYPERACTIVITY DISORDER
  4. CLONIDINE. [Suspect]
     Active Substance: CLONIDINE
     Indication: ATTENTION DEFICIT HYPERACTIVITY DISORDER
     Dosage: 0.4 MILLIGRAM,EVERY NIGHT AT BEDTIME
     Route: 065
  5. ADDERALL [Concomitant]
     Active Substance: AMPHETAMINE ASPARTATE\AMPHETAMINE SULFATE\DEXTROAMPHETAMINE SACCHARATE\DEXTROAMPHETAMINE SULFATE
     Indication: BIPOLAR DISORDER
     Dosage: 50 MILLIGRAM
     Route: 065
  6. DEXTROAMPHETAMINE. [Concomitant]
     Active Substance: DEXTROAMPHETAMINE
     Indication: BIPOLAR DISORDER
     Dosage: UNK
     Route: 065
  7. CLONIDINE. [Suspect]
     Active Substance: CLONIDINE
     Indication: BIPOLAR DISORDER
  8. RISPERIDONE. [Concomitant]
     Active Substance: RISPERIDONE
     Indication: BIPOLAR DISORDER
     Dosage: 1 MILLIGRAM, TWO TIMES A DAY
     Route: 065

REACTIONS (10)
  - Withdrawal hypertension [Recovered/Resolved]
  - Vomiting [Recovered/Resolved]
  - Malignant hypertension [Recovered/Resolved]
  - Generalised tonic-clonic seizure [Unknown]
  - Abdominal pain [Unknown]
  - Rebound effect [Unknown]
  - Ileus [Unknown]
  - Intestinal obstruction [Unknown]
  - Abdominal tenderness [Unknown]
  - Urine ketone body present [Unknown]
